FAERS Safety Report 19798556 (Version 2)
Quarter: 2021Q4

REPORT INFORMATION
  Report Type: Spontaneous
  Country: US (occurrence: US)
  Receive Date: 20210906
  Receipt Date: 20211012
  Transmission Date: 20220303
  Serious: Yes (Hospitalization)
  Sender: FDA-Public Use
  Company Number: US-BIOGEN-2021BI01043618

PATIENT
  Age: 11 Year
  Sex: Female
  Weight: 40 kg

DRUGS (106)
  1. SPINRAZA [Suspect]
     Active Substance: NUSINERSEN
     Indication: Spinal muscular atrophy
     Route: 065
     Dates: start: 20180509, end: 20190509
  2. SPINRAZA [Suspect]
     Active Substance: NUSINERSEN
     Route: 037
     Dates: start: 20191113, end: 20191113
  3. SPINRAZA [Suspect]
     Active Substance: NUSINERSEN
     Route: 037
     Dates: start: 20200407, end: 20200407
  4. SPINRAZA [Suspect]
     Active Substance: NUSINERSEN
     Route: 037
     Dates: start: 20200923, end: 20200923
  5. SPINRAZA [Suspect]
     Active Substance: NUSINERSEN
     Route: 037
     Dates: start: 20210217, end: 20210217
  6. SPINRAZA [Suspect]
     Active Substance: NUSINERSEN
     Route: 037
     Dates: start: 20210616, end: 20210616
  7. APITEGROMAB [Suspect]
     Active Substance: APITEGROMAB
     Indication: Spinal muscular atrophy
     Route: 042
     Dates: start: 20191015, end: 20191015
  8. APITEGROMAB [Suspect]
     Active Substance: APITEGROMAB
     Dosage: SINGLE
     Route: 042
     Dates: start: 20191112, end: 20191112
  9. APITEGROMAB [Suspect]
     Active Substance: APITEGROMAB
     Dosage: SINGLE
     Route: 042
     Dates: start: 20191212, end: 20191212
  10. APITEGROMAB [Suspect]
     Active Substance: APITEGROMAB
     Dosage: SINGLE
     Route: 042
     Dates: start: 20200109, end: 20200109
  11. APITEGROMAB [Suspect]
     Active Substance: APITEGROMAB
     Dosage: SINGLE
     Route: 042
     Dates: start: 20200205, end: 20200205
  12. APITEGROMAB [Suspect]
     Active Substance: APITEGROMAB
     Dosage: SINGLE
     Route: 042
     Dates: start: 20200304, end: 20200304
  13. APITEGROMAB [Suspect]
     Active Substance: APITEGROMAB
     Dosage: SINGLE
     Route: 042
     Dates: start: 20200716, end: 20200716
  14. APITEGROMAB [Suspect]
     Active Substance: APITEGROMAB
     Dosage: SINGLE
     Route: 042
     Dates: start: 20200819, end: 20200819
  15. APITEGROMAB [Suspect]
     Active Substance: APITEGROMAB
     Dosage: SINGLE
     Route: 042
     Dates: start: 20200916, end: 20200916
  16. APITEGROMAB [Suspect]
     Active Substance: APITEGROMAB
     Dosage: SINGLE
     Route: 042
     Dates: start: 20201028, end: 20201028
  17. APITEGROMAB [Suspect]
     Active Substance: APITEGROMAB
     Dosage: SINGLE
     Route: 042
     Dates: start: 20201119, end: 20201119
  18. TYLENOL [Concomitant]
     Active Substance: ACETAMINOPHEN
     Indication: Headache
     Route: 048
     Dates: start: 20191016, end: 20191016
  19. TYLENOL [Concomitant]
     Active Substance: ACETAMINOPHEN
     Route: 048
     Dates: start: 20191023, end: 20191023
  20. TYLENOL [Concomitant]
     Active Substance: ACETAMINOPHEN
     Route: 048
     Dates: start: 20191206, end: 20191206
  21. TYLENOL [Concomitant]
     Active Substance: ACETAMINOPHEN
     Route: 048
     Dates: start: 20200205, end: 20200205
  22. TYLENOL [Concomitant]
     Active Substance: ACETAMINOPHEN
     Route: 048
     Dates: start: 20201012, end: 20201015
  23. TYLENOL [Concomitant]
     Active Substance: ACETAMINOPHEN
     Route: 048
     Dates: start: 20191113, end: 20191113
  24. TYLENOL [Concomitant]
     Active Substance: ACETAMINOPHEN
     Route: 048
     Dates: start: 20191113, end: 20191113
  25. TYLENOL [Concomitant]
     Active Substance: ACETAMINOPHEN
     Route: 048
     Dates: start: 20200303, end: 20200304
  26. TYLENOL [Concomitant]
     Active Substance: ACETAMINOPHEN
     Route: 048
     Dates: start: 20191226, end: 20191228
  27. TYLENOL [Concomitant]
     Active Substance: ACETAMINOPHEN
     Route: 048
     Dates: start: 20191113, end: 20191113
  28. ESCITALOPRAM [Concomitant]
     Active Substance: ESCITALOPRAM OXALATE
     Indication: Adjustment disorder
     Route: 065
     Dates: start: 20200625, end: 20210319
  29. ESCITALOPRAM [Concomitant]
     Active Substance: ESCITALOPRAM OXALATE
     Route: 048
     Dates: start: 201904, end: 20200624
  30. OXYMETAZOLINE HYDROCHLORIDE [Concomitant]
     Active Substance: OXYMETAZOLINE HYDROCHLORIDE
     Indication: Product used for unknown indication
     Route: 065
  31. LACTATED RINGERS SOLUTION [Concomitant]
     Active Substance: CALCIUM CHLORIDE\POTASSIUM CHLORIDE\SODIUM CHLORIDE\SODIUM LACTATE
     Indication: Catheter management
     Dosage: CONTINUOUS
     Route: 042
     Dates: start: 20210616, end: 20210616
  32. LACTATED RINGERS SOLUTION [Concomitant]
     Active Substance: CALCIUM CHLORIDE\POTASSIUM CHLORIDE\SODIUM CHLORIDE\SODIUM LACTATE
     Route: 042
     Dates: start: 20191113, end: 20191113
  33. calcium carbonate vitamin D3 [Concomitant]
     Indication: Osteopenia
     Route: 048
     Dates: start: 20201222
  34. PFIZER-BIONTECH COVID-19 VACCINE [Concomitant]
     Active Substance: TOZINAMERAN
     Indication: COVID-19 prophylaxis
     Dosage: 1ST DOSE
     Route: 030
     Dates: start: 20210522, end: 20210522
  35. PFIZER-BIONTECH COVID-19 VACCINE [Concomitant]
     Active Substance: TOZINAMERAN
     Dosage: 2ND DOSE
     Route: 030
     Dates: start: 20210612, end: 20210612
  36. Hauls Cough drops Triple smoothing action menthol [Concomitant]
     Indication: Cough
     Dosage: QD AS NEEDED
     Route: 048
     Dates: start: 20191216, end: 20191220
  37. HYDROCORTISONE [Concomitant]
     Active Substance: HYDROCORTISONE
     Indication: Rash
     Dosage: UNKNOWN DOSAGE
     Route: 061
     Dates: start: 20200121, end: 20200121
  38. TDAP Vaccination [Concomitant]
     Indication: Immunisation
     Route: 030
     Dates: start: 20200914, end: 20200914
  39. BENADRYL [Concomitant]
     Active Substance: DIPHENHYDRAMINE HYDROCHLORIDE
     Indication: Rash
     Route: 048
     Dates: start: 20200531, end: 20200531
  40. Meningococcal MCV40 [Concomitant]
     Indication: Immunisation
     Route: 030
     Dates: start: 20200814, end: 20200814
  41. CLARITIN [Concomitant]
     Active Substance: LORATADINE
     Indication: Seasonal allergy
     Route: 048
     Dates: start: 2017
  42. DEXMEDETOMIDINE [Concomitant]
     Active Substance: DEXMEDETOMIDINE
     Indication: Sedative therapy
     Route: 042
     Dates: start: 20200407, end: 20200407
  43. Ancef (cefazolin) [Concomitant]
     Indication: Infection prophylaxis
     Route: 042
     Dates: start: 20201209, end: 20201210
  44. MAXIPIME [Concomitant]
     Active Substance: CEFEPIME HYDROCHLORIDE
     Indication: Infection prophylaxis
     Dosage: 40 MG/ML IN DILUTION 2000 MG, Q8H/D
     Route: 042
     Dates: start: 20201210, end: 20201214
  45. VALIUM [Concomitant]
     Active Substance: DIAZEPAM
     Indication: Pain management
     Route: 048
     Dates: start: 20201209, end: 20201210
  46. VALIUM [Concomitant]
     Active Substance: DIAZEPAM
     Route: 048
     Dates: start: 20201210, end: 20201210
  47. VALIUM [Concomitant]
     Active Substance: DIAZEPAM
     Route: 048
     Dates: start: 20201216, end: 20201226
  48. VALIUM [Concomitant]
     Active Substance: DIAZEPAM
     Dosage: AS NEEDED
     Route: 042
     Dates: start: 20201209, end: 20201209
  49. VALIUM [Concomitant]
     Active Substance: DIAZEPAM
     Route: 048
     Dates: start: 20210110, end: 20210110
  50. ZOFRAN [Concomitant]
     Active Substance: ONDANSETRON HYDROCHLORIDE
     Indication: Prophylaxis of nausea and vomiting
     Dosage: Q6 H, AS NEEDED
     Route: 042
     Dates: start: 20201209, end: 20201216
  51. ZOFRAN [Concomitant]
     Active Substance: ONDANSETRON HYDROCHLORIDE
     Route: 042
     Dates: start: 20210217, end: 20210217
  52. CELEBREX [Concomitant]
     Active Substance: CELECOXIB
     Indication: Pain management
     Dosage: 100 MG SID
     Route: 048
     Dates: start: 20201222, end: 20201222
  53. CELEBREX [Concomitant]
     Active Substance: CELECOXIB
     Route: 048
     Dates: start: 20201212, end: 20201221
  54. CHOLECALCIFEROL [Concomitant]
     Active Substance: CHOLECALCIFEROL
     Indication: Vitamin D deficiency
     Route: 048
     Dates: start: 20201211
  55. NEURONTIN [Concomitant]
     Active Substance: GABAPENTIN
     Indication: Pain management
     Route: 048
     Dates: start: 20201218, end: 20201219
  56. NEURONTIN [Concomitant]
     Active Substance: GABAPENTIN
     Dosage: QHS
     Route: 048
     Dates: start: 20201211, end: 20201215
  57. NEURONTIN [Concomitant]
     Active Substance: GABAPENTIN
     Route: 048
     Dates: start: 20201219, end: 20210527
  58. FAMOTIDINE [Concomitant]
     Active Substance: FAMOTIDINE
     Indication: Routine health maintenance
     Route: 048
     Dates: start: 20201210, end: 20210528
  59. SODIUM CHLORIDE [Concomitant]
     Active Substance: SODIUM CHLORIDE
     Indication: Anticoagulant therapy
     Route: 013
  60. SODIUM CHLORIDE [Concomitant]
     Active Substance: SODIUM CHLORIDE
     Route: 042
     Dates: start: 20201209, end: 20201209
  61. HYDROMORPHONE [Concomitant]
     Active Substance: HYDROMORPHONE
     Indication: Analgesic therapy
     Dosage: 0.2 MG/ML IN NS, .09-DEC-2020:  .24 MG BOLUS, .08 MG/KG, .16 MG BOLUS, .08 MG/KG/HR
     Route: 042
     Dates: start: 20201209, end: 20201209
  62. HYDROMORPHONE [Concomitant]
     Active Substance: HYDROMORPHONE
     Dosage: 0.2 MG IN NS DOSING .?10-DEC-2020: 0.16 BOLUS, .06 MG/KG/HR
     Route: 042
     Dates: start: 20201210, end: 20201210
  63. PCA IV Ketamine [Concomitant]
     Indication: Analgesic therapy
     Dosage: 2 MG/ML IN NS; 4 MG/HR CONTINUOUS
     Route: 042
     Dates: start: 20201209, end: 202012
  64. PHENYLEPHRINE [Concomitant]
     Active Substance: PHENYLEPHRINE HYDROCHLORIDE
     Indication: Hypotension
     Dosage: 0.1 TO 5 MCG/KG/MIN
     Route: 042
     Dates: start: 20201209, end: 20201210
  65. GARAMYCIN [Concomitant]
     Active Substance: GENTAMICIN SULFATE
     Indication: Infection prophylaxis
     Route: 042
     Dates: start: 20201209, end: 20201210
  66. midozolam [Concomitant]
     Indication: Anaesthesia
     Route: 042
     Dates: start: 20201209, end: 20201209
  67. KETAMINE [Concomitant]
     Active Substance: KETAMINE
     Indication: Sedation
     Route: 042
     Dates: start: 20201209, end: 20201209
  68. FENTANYL [Concomitant]
     Active Substance: FENTANYL
     Indication: Pain prophylaxis
     Route: 014
     Dates: start: 20201209, end: 20201209
  69. Autotransfusion heparin in normal saline [Concomitant]
     Indication: Post procedural complication
     Dosage: CONTINUOUS PRN
     Route: 042
     Dates: start: 20201209, end: 20201209
  70. NEBCIN [Concomitant]
     Active Substance: TOBRAMYCIN SULFATE
     Indication: Infection prophylaxis
     Route: 065
     Dates: start: 20201209, end: 20201209
  71. INFLUENZA VIRUS VACCINE [Concomitant]
     Active Substance: INFLUENZA VIRUS VACCINE
     Indication: Antiviral prophylaxis
     Route: 030
     Dates: start: 20201216, end: 20201216
  72. BACTRIM [Concomitant]
     Active Substance: SULFAMETHOXAZOLE\TRIMETHOPRIM
     Indication: Urinary tract infection
     Route: 048
     Dates: start: 20201229, end: 20201231
  73. PAPAVERINE [Concomitant]
     Active Substance: PAPAVERINE
     Indication: Anticoagulant therapy
     Dosage: CONTINUOUS
     Route: 037
     Dates: start: 20201209, end: 20201209
  74. FLUVOXAMINE MALEATE [Concomitant]
     Active Substance: FLUVOXAMINE MALEATE
     Indication: Adjustment disorder
     Route: 048
     Dates: start: 20210319
  75. PRILOSEC [Concomitant]
     Active Substance: OMEPRAZOLE MAGNESIUM
     Indication: Gastritis
     Route: 048
     Dates: start: 20210112
  76. PEPTO-BISMOL [Concomitant]
     Active Substance: BISMUTH SUBSALICYLATE
     Indication: Abdominal pain upper
     Dosage: AS NEEDED
     Route: 048
     Dates: start: 20210111, end: 20210111
  77. MELATONIN [Concomitant]
     Active Substance: MELATONIN
     Indication: Sleep disorder
     Dosage: AS NEEDED
     Route: 065
     Dates: start: 20210717
  78. ACETAMINOPHEN [Concomitant]
     Active Substance: ACETAMINOPHEN
     Indication: Analgesic therapy
     Dosage: Q6 HOURS/DAY
     Route: 048
  79. PROPOFOL [Concomitant]
     Active Substance: PROPOFOL
     Indication: Sedative therapy
     Dosage: AS NEEDED
     Route: 042
     Dates: start: 20210616, end: 20210616
  80. PROPOFOL [Concomitant]
     Active Substance: PROPOFOL
     Route: 042
     Dates: start: 20210217, end: 20210217
  81. PROPOFOL [Concomitant]
     Active Substance: PROPOFOL
     Dosage: UNKNOWN DOSE MG/KG/MIN
     Route: 042
     Dates: start: 20201209, end: 20201209
  82. PROPOFOL [Concomitant]
     Active Substance: PROPOFOL
     Route: 042
     Dates: start: 20201209, end: 20201209
  83. PROPOFOL [Concomitant]
     Active Substance: PROPOFOL
     Route: 042
     Dates: start: 20200923, end: 20200923
  84. Albumin human 5% [Concomitant]
     Indication: Hypoalbuminaemia
     Route: 042
     Dates: start: 20201209, end: 20201210
  85. COLACE [Concomitant]
     Active Substance: DOCUSATE SODIUM
     Indication: Anaemia
     Route: 048
     Dates: start: 20201214
  86. FERROUS SULFATE [Concomitant]
     Active Substance: FERROUS SULFATE
     Indication: Anaemia
     Route: 048
     Dates: start: 20201217
  87. D 5% NACL 0.9% [Concomitant]
     Indication: Fluid replacement
     Dosage: 80 MG/HR
     Route: 042
     Dates: start: 20201209, end: 20201209
  88. DILAUDID [Concomitant]
     Active Substance: HYDROMORPHONE HYDROCHLORIDE
     Indication: Procedural pain
     Dosage: AS NEEDED
     Route: 048
     Dates: start: 20201214, end: 20201214
  89. TRANEXAMIC ACID [Concomitant]
     Active Substance: TRANEXAMIC ACID
     Indication: Haemorrhage prophylaxis
     Dosage: 100 ML/HR
     Route: 042
     Dates: start: 20201209, end: 20201209
  90. DEXAMETHASONE [Concomitant]
     Active Substance: DEXAMETHASONE
     Indication: Prophylaxis of nausea and vomiting
     Route: 042
     Dates: start: 20201209, end: 20201209
  91. NEO-SYNEPHRINE [Concomitant]
     Active Substance: PHENYLEPHRINE HYDROCHLORIDE
     Indication: Hypotension
     Route: 042
     Dates: start: 20201209, end: 20201209
  92. NEO-SYNEPHRINE [Concomitant]
     Active Substance: PHENYLEPHRINE HYDROCHLORIDE
     Dosage: 0.1-5 MCG/KG/MIN
     Route: 042
     Dates: start: 20201209, end: 20201210
  93. TORADOL [Concomitant]
     Active Substance: KETOROLAC TROMETHAMINE
     Indication: Pain management
     Route: 042
     Dates: start: 20201210, end: 20201212
  94. ULTIVA [Concomitant]
     Active Substance: REMIFENTANIL HYDROCHLORIDE
     Indication: Analgesic therapy
     Dosage: 250 MCG/ML IN D5%: .3 MCG/KG/MIN
     Route: 042
     Dates: start: 20201209, end: 20201209
  95. lidocaine Injection 2% prefilled syringe [Concomitant]
     Indication: Local anaesthesia
     Dosage: AS NEEDED
     Route: 042
     Dates: start: 20210616, end: 20210616
  96. SEVOFLURANE [Concomitant]
     Active Substance: SEVOFLURANE
     Indication: Spinal anaesthesia
     Route: 065
     Dates: start: 20191113, end: 20191113
  97. SEVOFLURANE [Concomitant]
     Active Substance: SEVOFLURANE
     Route: 065
     Dates: start: 20200407, end: 20200407
  98. SEVOFLURANE [Concomitant]
     Active Substance: SEVOFLURANE
     Route: 065
     Dates: start: 20200923, end: 20200923
  99. SEVOFLURANE [Concomitant]
     Active Substance: SEVOFLURANE
     Route: 065
     Dates: start: 20210217, end: 20210217
  100. LIDOCAINE [Concomitant]
     Active Substance: LIDOCAINE
     Indication: Local anaesthesia
     Route: 042
     Dates: start: 20200923, end: 20200923
  101. LIDOCAINE [Concomitant]
     Active Substance: LIDOCAINE
     Route: 037
     Dates: start: 20201209, end: 20201209
  102. miralas (polyethylene glycol) [Concomitant]
     Indication: Constipation
     Dosage: 1 PACKET DAILY
     Route: 048
     Dates: start: 20201209, end: 20201224
  103. DURAMORPH [Concomitant]
     Active Substance: MORPHINE SULFATE
     Indication: Pain management
     Route: 037
     Dates: start: 20201209, end: 20201209
  104. NARCAN [Concomitant]
     Active Substance: NALOXONE HYDROCHLORIDE
     Indication: Pain management
     Dosage: 2MCG/KG/HR
     Route: 042
     Dates: start: 20201209, end: 202012
  105. EPHEDRINE [Concomitant]
     Active Substance: EPHEDRINE
     Indication: Spinal anaesthesia
     Route: 042
     Dates: start: 20201209, end: 20201209
  106. PAPAVERINE [Concomitant]
     Active Substance: PAPAVERINE
     Indication: Anticoagulant therapy
     Route: 037
     Dates: start: 20201209, end: 20201211

REACTIONS (9)
  - Scoliosis [Recovered/Resolved]
  - Anaemia postoperative [Unknown]
  - Tachycardia [Unknown]
  - Hypotension [Unknown]
  - Hypoalbuminaemia [Unknown]
  - Hypoxia [Unknown]
  - Pyrexia [Unknown]
  - Constipation [Unknown]
  - Post lumbar puncture syndrome [Not Recovered/Not Resolved]

NARRATIVE: CASE EVENT DATE: 20190715
